FAERS Safety Report 7731850-1 (Version None)
Quarter: 2011Q3

REPORT INFORMATION
  Report Type: 
  Country: None (occurrence: None)
  Receive Date: 20110906
  Receipt Date: 20110823
  Transmission Date: 20111222
  Serious: Yes (Life-Threatening, Hospitalization, Disabling)
  Sender: FDA-Public Use
  Company Number: GB-MYLANLABS-2011S1017511

PATIENT
  Age: 70 Year
  Sex: Male

DRUGS (4)
  1. CIPROFLOXACIN [Suspect]
     Indication: DIVERTICULITIS
     Route: 048
     Dates: start: 20030330, end: 20110717
  2. GAVISCON [Concomitant]
     Indication: PRODUCT USED FOR UNKNOWN INDICATION
     Dates: start: 20040921
  3. CETIRIZINE HCL [Concomitant]
     Indication: HYPERSENSITIVITY
     Route: 048
     Dates: start: 20080430
  4. OMEPRAZOLE [Concomitant]
     Indication: PRODUCT USED FOR UNKNOWN INDICATION
     Dates: start: 20071019

REACTIONS (2)
  - GASTROINTESTINAL NECROSIS [None]
  - ABDOMINAL DISTENSION [None]
